FAERS Safety Report 19955152 (Version 1)
Quarter: 2021Q4

REPORT INFORMATION
  Report Type: Spontaneous
  Country: CN (occurrence: CN)
  Receive Date: 20211014
  Receipt Date: 20211014
  Transmission Date: 20220303
  Serious: Yes (Hospitalization)
  Sender: FDA-Public Use
  Company Number: CN-PFIZER INC-202101302880

PATIENT
  Age: 97 Year
  Sex: Male
  Weight: 65 kg

DRUGS (1)
  1. LINEZOLID [Suspect]
     Active Substance: LINEZOLID
     Indication: Pneumonia
     Dosage: 0.6 G, 2X/DAY
     Route: 041
     Dates: start: 20210917, end: 20210920

REACTIONS (1)
  - Hepatic enzyme increased [Recovering/Resolving]

NARRATIVE: CASE EVENT DATE: 20210920
